FAERS Safety Report 6107497-X (Version None)
Quarter: 2009Q1

REPORT INFORMATION
  Report Type: 
  Country: None (occurrence: None)
  Receive Date: 20090309
  Receipt Date: 20090225
  Transmission Date: 20090719
  Serious: Yes (Hospitalization, Congenital Anomaly)
  Sender: FDA-Public Use
  Company Number: FR-PFIZER INC-2009158064

PATIENT

DRUGS (3)
  1. REVATIO [Suspect]
     Indication: PULMONARY HYPERTENSION
     Dosage: 20 MG, 3X/DAY
     Route: 064
     Dates: start: 20081030, end: 20081215
  2. FUROSEMIDE [Concomitant]
     Dosage: UNK
     Dates: start: 20080406, end: 20081215
  3. ACETYLSALICYLATE LYSINE [Concomitant]
     Dosage: UNK
     Dates: start: 20080406, end: 20081215

REACTIONS (2)
  - COARCTATION OF THE AORTA [None]
  - DRUG EXPOSURE DURING PREGNANCY [None]
